FAERS Safety Report 13541774 (Version 2)
Quarter: 2017Q2

REPORT INFORMATION
  Report Type: Spontaneous
  Country: US (occurrence: US)
  Receive Date: 20170512
  Receipt Date: 20170621
  Transmission Date: 20170830
  Serious: Yes (Other)
  Sender: FDA-Public Use
  Company Number: US-TEVA-768287USA

PATIENT
  Age: 41 Year
  Sex: Female

DRUGS (2)
  1. LEVOTHYROXINE. [Concomitant]
     Active Substance: LEVOTHYROXINE
  2. COPAXONE [Suspect]
     Active Substance: GLATIRAMER ACETATE
     Indication: MULTIPLE SCLEROSIS
     Dosage: 20 MILLIGRAM DAILY;
     Route: 058
     Dates: start: 201401, end: 201612

REACTIONS (2)
  - Feeling abnormal [Not Recovered/Not Resolved]
  - Multiple sclerosis plaque [Not Recovered/Not Resolved]

NARRATIVE: CASE EVENT DATE: 201611
